FAERS Safety Report 8702691 (Version 3)
Quarter: 2012Q4

REPORT INFORMATION
  Report Type: 
  Country: US (occurrence: US)
  Receive Date: 20120803
  Receipt Date: 20121101
  Transmission Date: 20130627
  Serious: Yes (Other)
  Sender: FDA-Public Use
  Company Number: US-PURDUE-USA-2012-0090803

PATIENT
  Age: 40 Year
  Sex: Male

DRUGS (7)
  1. OXYCODONE HYDROCHLORIDE (SIMILAR TO NDA 20-553) [Suspect]
     Indication: PAIN
  2. VICODIN [Suspect]
     Indication: PRODUCT USED FOR UNKNOWN INDICATION
  3. SOMA [Suspect]
     Indication: PRODUCT USED FOR UNKNOWN INDICATION
  4. PERCOCET [Suspect]
     Indication: PRODUCT USED FOR UNKNOWN INDICATION
  5. FLEXERIL                           /00428402/ [Suspect]
     Indication: PRODUCT USED FOR UNKNOWN INDICATION
  6. ROXICODONE [Suspect]
     Indication: PRODUCT USED FOR UNKNOWN INDICATION
  7. MUSCLE RELAXANTS (NOS) [Suspect]
     Indication: PRODUCT USED FOR UNKNOWN INDICATION

REACTIONS (4)
  - Drug dependence [Unknown]
  - Drug abuse [Unknown]
  - Suicidal ideation [Unknown]
  - Depression [Unknown]
